FAERS Safety Report 4752989-9 (Version None)
Quarter: 2005Q3

REPORT INFORMATION
  Report Type: 
  Country: None (occurrence: None)
  Receive Date: 20050825
  Receipt Date: 20050815
  Transmission Date: 20060218
  Serious: Yes (Hospitalization)
  Sender: FDA-Public Use
  Company Number: S05-USA-01707-01

PATIENT
  Age: 69 Year
  Sex: Female

DRUGS (3)
  1. TIAZAC [Suspect]
     Indication: HYPERTENSION
     Dosage: 180 MG QD PO
     Route: 048
     Dates: start: 19970101
  2. SPIRONOLACTONE [Suspect]
     Indication: HYPERTENSION
     Dosage: 25 MG TIW
  3. MYLANTA (ALUMINUM/MAGNESIA/SIMETHICONE) [Concomitant]

REACTIONS (7)
  - ADHESION [None]
  - ASTHENIA [None]
  - HEPATIC LESION [None]
  - NASOPHARYNGITIS [None]
  - NAUSEA [None]
  - PNEUMONIA [None]
  - VOMITING [None]
